FAERS Safety Report 5734812-9 (Version None)
Quarter: 2008Q2

REPORT INFORMATION
  Report Type: 
  Country: None (occurrence: None)
  Receive Date: 20080508
  Receipt Date: 20080508
  Transmission Date: 20081010
  Serious: Yes (Disabling)
  Sender: FDA-Public Use
  Company Number: None

PATIENT
  Sex: Female
  Weight: 62.5964 kg

DRUGS (3)
  1. CREST PRO HEALTH 12 HOUR CREST [Suspect]
     Indication: BREATH ODOUR
     Dosage: 1/3 CAP FULL BID PO
     Route: 048
     Dates: start: 20080414, end: 20080506
  2. CREST PRO HEALTH 12 HOUR CREST [Suspect]
     Indication: DENTAL PLAQUE
     Dosage: 1/3 CAP FULL BID PO
     Route: 048
     Dates: start: 20080414, end: 20080506
  3. CREST PRO HEALTH 12 HOUR CREST [Suspect]
     Indication: GINGIVITIS
     Dosage: 1/3 CAP FULL BID PO
     Route: 048
     Dates: start: 20080414, end: 20080506

REACTIONS (2)
  - EMOTIONAL DISTRESS [None]
  - TOOTH DISCOLOURATION [None]
